FAERS Safety Report 18625054 (Version 1)
Quarter: 2020Q4

REPORT INFORMATION
  Report Type: Spontaneous
  Country: US (occurrence: US)
  Receive Date: 20201216
  Receipt Date: 20201216
  Transmission Date: 20210114
  Serious: No
  Sender: FDA-Public Use
  Company Number: US-UNITED THERAPEUTICS-UNT-2020-019230

PATIENT
  Age: 26 Year
  Sex: Female
  Weight: 97.51 kg

DRUGS (4)
  1. LETAIRIS [Concomitant]
     Active Substance: AMBRISENTAN
     Indication: PRODUCT USED FOR UNKNOWN INDICATION
     Dosage: UNK
     Route: 065
  2. ADCIRCA [Concomitant]
     Active Substance: TADALAFIL
     Indication: PULMONARY ARTERIAL HYPERTENSION
     Dosage: UNK
     Route: 065
  3. REMODULIN [Suspect]
     Active Substance: TREPROSTINIL
     Indication: PULMONARY ARTERIAL HYPERTENSION
     Dosage: UNK, CONTINUING
     Route: 058
     Dates: start: 20200318
  4. REMODULIN [Suspect]
     Active Substance: TREPROSTINIL
     Dosage: 0.078 ?G/KG, CONTINUING
     Route: 058
     Dates: start: 2020

REACTIONS (5)
  - Infusion site haemorrhage [Unknown]
  - Vision blurred [Recovering/Resolving]
  - Palpitations [Recovered/Resolved]
  - Infusion site pain [Unknown]
  - Infusion site irritation [Unknown]

NARRATIVE: CASE EVENT DATE: 2020
